FAERS Safety Report 5267974-0 (Version None)
Quarter: 2007Q1

REPORT INFORMATION
  Report Type: 
  Country: None (occurrence: None)
  Receive Date: 20061211
  Receipt Date: 20060907
  Transmission Date: 20070707
  Serious: Yes (Disabling)
  Sender: FDA-Public Use
  Company Number: ENTC2006-0255

PATIENT
  Age: 65 Year
  Sex: Male

DRUGS (4)
  1. STALEVO (TABLET) (LEVODOPA, CARBIDOPA, ENTACAPONE) [Suspect]
     Indication: PARKINSON'S DISEASE
     Dosage: 100 MG Q3HRS WHILE AWAKE, ORAL
     Route: 048
     Dates: start: 20040601
  2. SINEMET [Concomitant]
  3. AMBIEN [Concomitant]
  4. VIAGRA [Concomitant]

REACTIONS (1)
  - GASTROINTESTINAL PAIN [None]
